FAERS Safety Report 10209444 (Version 3)
Quarter: 2014Q3

REPORT INFORMATION
  Report Type: Report from Study
  Country: MX (occurrence: MX)
  Receive Date: 20140601
  Receipt Date: 20140728
  Transmission Date: 20150326
  Serious: Yes (Other)
  Sender: FDA-Public Use
  Company Number: PHHY2014MX052782

PATIENT
  Age: 61 Year
  Sex: Female

DRUGS (5)
  1. STALEVO [Suspect]
     Active Substance: CARBIDOPA\ENTACAPONE\LEVODOPA
     Dosage: 1 DF (200/50/12.5 MG) DAILY
     Route: 048
     Dates: start: 201402
  2. TIBOLONE [Concomitant]
     Active Substance: TIBOLONE
     Indication: MATRIXECTOMY
     Dosage: 1 UKN, DAILY
  3. ITOPRIDE [Concomitant]
     Active Substance: ITOPRIDE
     Indication: HIATUS HERNIA
     Dosage: 3 DF, QD
     Dates: start: 201311
  4. ESTROGENS [Concomitant]
     Active Substance: ESTROGENS
     Dosage: UNK UKN, UNK
  5. STALEVO [Suspect]
     Active Substance: CARBIDOPA\ENTACAPONE\LEVODOPA
     Indication: PARKINSON^S DISEASE
     Dosage: 1 DF (200/100/25 MG), DAILY
     Route: 048
     Dates: start: 20140118, end: 201402

REACTIONS (9)
  - Pain in extremity [Not Recovered/Not Resolved]
  - Head titubation [Not Recovered/Not Resolved]
  - Incorrect dose administered [Recovered/Resolved]
  - Abasia [Not Recovered/Not Resolved]
  - Nausea [Recovered/Resolved]
  - Drug ineffective [Unknown]
  - Sleep disorder [Not Recovered/Not Resolved]
  - Early satiety [Unknown]
  - Somnolence [Not Recovered/Not Resolved]

NARRATIVE: CASE EVENT DATE: 201401
